FAERS Safety Report 8276535-0 (Version None)
Quarter: 2012Q2

REPORT INFORMATION
  Report Type: 
  Country: None (occurrence: None)
  Receive Date: 20120412
  Receipt Date: 20120305
  Transmission Date: 20120825
  Serious: No
  Sender: FDA-Public Use
  Company Number: US-GLAXOSMITHKLINE-A0968628A

PATIENT
  Age: 76 Year
  Sex: Male

DRUGS (4)
  1. BLOOD PRESSURE MEDICATION [Concomitant]
  2. ANTI-CHOLESTEROL MEDICATION [Concomitant]
  3. JALYN [Suspect]
     Indication: PROSTATOMEGALY
     Dosage: 1CAP PER DAY
     Route: 048
     Dates: start: 20120201, end: 20120301
  4. TYLENOL (CAPLET) [Concomitant]

REACTIONS (1)
  - DIVERTICULITIS [None]
